FAERS Safety Report 8908119 (Version 2)
Quarter: 2012Q4

REPORT INFORMATION
  Report Type: 
  Country: US (occurrence: US)
  Receive Date: 20121113
  Receipt Date: 20121116
  Transmission Date: 20130627
  Serious: No
  Sender: FDA-Public Use
  Company Number: US-PFIZER INC-2012282789

PATIENT
  Age: 85 Year
  Sex: Male
  Weight: 83.9 kg

DRUGS (5)
  1. CARDURA [Suspect]
     Indication: BLOOD PRESSURE HIGH
     Dosage: 8 mg, 1x/day
  2. BABY ASPIRIN [Concomitant]
     Dosage: 81 mg, 1x/day
  3. NORVASC [Concomitant]
     Indication: BLOOD PRESSURE HIGH
     Dosage: 5 mg, 1x/day
  4. ALTACE [Concomitant]
     Indication: BLOOD PRESSURE HIGH
     Dosage: UNK
  5. LEVOXYL [Concomitant]
     Indication: THYROID DISORDER
     Dosage: 0.75 mg, 1x/day

REACTIONS (1)
  - Blood pressure inadequately controlled [Not Recovered/Not Resolved]
